FAERS Safety Report 9454062 (Version 1)
Quarter: 2013Q3

REPORT INFORMATION
  Report Type: Spontaneous
  Country: US (occurrence: US)
  Receive Date: 20130812
  Receipt Date: 20130812
  Transmission Date: 20140515
  Serious: Yes (Death)
  Sender: FDA-Public Use
  Company Number: US-CUBIST PHARMACEUTICAL, INC.-2013CBST000207

PATIENT
  Sex: 0

DRUGS (1)
  1. ENTEREG [Suspect]
     Indication: POSTOPERATIVE ILEUS
     Dosage: UNK UNK, UNK
     Route: 065

REACTIONS (2)
  - Colectomy [Fatal]
  - Gastrointestinal disorder postoperative [Fatal]
